FAERS Safety Report 21453759 (Version 2)
Quarter: 2022Q4

REPORT INFORMATION
  Report Type: Spontaneous
  Country: US (occurrence: US)
  Receive Date: 20221013
  Receipt Date: 20221014
  Transmission Date: 20230112
  Serious: Yes (Other)
  Sender: FDA-Public Use
  Company Number: US-PFIZER INC-202201218515

PATIENT
  Age: 41 Year
  Sex: Female
  Weight: 58.97 kg

DRUGS (3)
  1. MORPHINE SULFATE [Suspect]
     Active Substance: MORPHINE SULFATE
     Dosage: 15 MG
     Dates: start: 20221005
  2. VERSED [Suspect]
     Active Substance: MIDAZOLAM HYDROCHLORIDE
     Dosage: UNK (INJECTION INTO THE STOMACH)
     Dates: start: 20221005
  3. PROZAC [Concomitant]
     Active Substance: FLUOXETINE HYDROCHLORIDE
     Indication: Depression
     Dosage: UNK, DAILY (DOSE UNKNOWN)
     Route: 048

REACTIONS (8)
  - Near death experience [Recovered/Resolved]
  - Aggression [Recovered/Resolved]
  - Dyspnoea [Recovered/Resolved]
  - Somnolence [Recovered/Resolved]
  - Panic reaction [Recovered/Resolved]
  - Contusion [Recovered/Resolved]
  - Skin exfoliation [Recovered/Resolved]
  - Product prescribing error [Unknown]

NARRATIVE: CASE EVENT DATE: 20221005
